FAERS Safety Report 23725144 (Version 3)
Quarter: 2024Q3

REPORT INFORMATION
  Report Type: Spontaneous
  Country: US (occurrence: US)
  Receive Date: 20240410
  Receipt Date: 20240709
  Transmission Date: 20241017
  Serious: Yes (Other)
  Sender: NOVO NORDISK
  Company Number: US-NOVOPROD-1200316

PATIENT
  Sex: Female

DRUGS (1)
  1. FIASP [Suspect]
     Active Substance: INSULIN ASPART
     Indication: Type 1 diabetes mellitus
     Dosage: UNK (OVERDOSE OF INSULIN AS IT GAVE ATLEAST 5 TO 10 TIMES THE DOSE FOR ONE UNIT OF INSULIN)
     Route: 058

REACTIONS (6)
  - Loss of consciousness [Not Recovered/Not Resolved]
  - Near death experience [Unknown]
  - Loss of consciousness [Not Recovered/Not Resolved]
  - Blood glucose decreased [Unknown]
  - Incorrect dose administered by device [Unknown]
  - Device malfunction [Unknown]

NARRATIVE: CASE EVENT DATE: 20230101
